FAERS Safety Report 9834691 (Version 2)
Quarter: 2014Q1

REPORT INFORMATION
  Report Type: Report from Study
  Country: CA (occurrence: CA)
  Receive Date: 20140122
  Receipt Date: 20140122
  Transmission Date: 20141002
  Serious: Yes (Hospitalization, Other)
  Sender: FDA-Public Use
  Company Number: CA-BRISTOL-MYERS SQUIBB COMPANY-19609635

PATIENT
  Age: 77 Year
  Sex: Male

DRUGS (14)
  1. ORENCIA [Suspect]
     Indication: RHEUMATOID ARTHRITIS
     Dosage: 1DF=750 UNIT NOS?EXP DATE:JUL16
     Dates: start: 20121205
  2. MORPHINE SULPHATE [Suspect]
     Dates: end: 20130617
  3. DILAUDID [Suspect]
  4. PREDNISONE [Concomitant]
  5. RAMIPRIL [Concomitant]
  6. METHOTREXATE [Concomitant]
  7. FOLIC ACID [Concomitant]
  8. BISOPROLOL [Concomitant]
  9. PANTOPRAZOLE [Concomitant]
  10. WARFARIN [Concomitant]
  11. ATROVENT [Concomitant]
  12. PULMICORT [Concomitant]
  13. NITROGLYCERIN [Concomitant]
  14. ASPIRIN [Concomitant]

REACTIONS (6)
  - Hallucination [Unknown]
  - Skin cancer [Unknown]
  - Arthropathy [Unknown]
  - Rash [Unknown]
  - Sleep disorder [Unknown]
  - Amnesia [Unknown]
